FAERS Safety Report 9364048 (Version 1)
Quarter: 2013Q2

REPORT INFORMATION
  Report Type: Spontaneous
  Country: US (occurrence: US)
  Receive Date: 20130624
  Receipt Date: 20130624
  Transmission Date: 20140414
  Serious: Yes (Other)
  Sender: FDA-Public Use
  Company Number: US-BAYER-2013-074796

PATIENT
  Age: 20 Year
  Sex: Female

DRUGS (1)
  1. MIRENA [Suspect]
     Dosage: UNK
     Dates: start: 20100526, end: 20100714

REACTIONS (9)
  - Device dislocation [None]
  - Abdominal pain lower [None]
  - Pelvic pain [None]
  - Dysmenorrhoea [None]
  - Headache [None]
  - Fatigue [None]
  - Menorrhagia [None]
  - Nausea [None]
  - Menstruation irregular [None]
